FAERS Safety Report 8541530-0 (Version None)
Quarter: 2012Q3

REPORT INFORMATION
  Report Type: 
  Country: None (occurrence: None)
  Receive Date: 20120726
  Receipt Date: 20120403
  Transmission Date: 20120928
  Serious: No
  Sender: FDA-Public Use
  Company Number: US-MUTUAL PHARMACEUTICAL COMPANY, INC.-CLCY20110040

PATIENT
  Sex: Male
  Weight: 77.18 kg

DRUGS (2)
  1. DIOVAN [Concomitant]
     Indication: HYPERTENSION
     Route: 048
  2. COLCRYS [Suspect]
     Indication: GOUT
     Route: 048
     Dates: start: 20110328

REACTIONS (1)
  - DRUG INEFFECTIVE [None]
